FAERS Safety Report 8030131-9 (Version None)
Quarter: 2011Q4

REPORT INFORMATION
  Report Type: 
  Country: None (occurrence: None)
  Receive Date: 20111130
  Receipt Date: 20110502
  Transmission Date: 20120403
  Serious: Yes (Hospitalization, Other)
  Sender: FDA-Public Use
  Company Number: US201002003460

PATIENT
  Age: 46 Year
  Sex: Male

DRUGS (2)
  1. BYETTA [Suspect]
     Dates: start: 20070101, end: 20070701
  2. EXENATIDE UNK STRENGTH PEN, DISPOSABLE DEVICE (EXENATIDE PEN (UNKNOWN [Concomitant]

REACTIONS (2)
  - ABDOMINAL PAIN UPPER [None]
  - PANCREATITIS [None]
